FAERS Safety Report 25755948 (Version 1)
Quarter: 2025Q3

REPORT INFORMATION
  Report Type: Spontaneous
  Country: US (occurrence: None)
  Receive Date: 20250902
  Receipt Date: 20250902
  Transmission Date: 20251021
  Serious: Yes (Hospitalization)
  Sender: FDA-CTU
  Company Number: None

PATIENT
  Age: 72 Year
  Sex: Female
  Weight: 58.5 kg

DRUGS (3)
  1. LORBRENA [Suspect]
     Active Substance: LORLATINIB
     Indication: Lung carcinoma cell type unspecified stage IV
     Dates: start: 20250113
  2. LORBRENA [Suspect]
     Active Substance: LORLATINIB
     Indication: Anaplastic lymphoma kinase gene mutation
  3. ALECENSA [Suspect]
     Active Substance: ALECTINIB HYDROCHLORIDE

REACTIONS (11)
  - Feeling cold [None]
  - Anxiety [None]
  - Night sweats [None]
  - Diarrhoea [None]
  - Swelling [None]
  - Weight increased [None]
  - Mood altered [None]
  - Fear [None]
  - Depression [None]
  - Screaming [None]
  - Speech disorder [None]

NARRATIVE: CASE EVENT DATE: 20250113
